FAERS Safety Report 5040325-2 (Version None)
Quarter: 2006Q2

REPORT INFORMATION
  Report Type: 
  Country: None (occurrence: None)
  Receive Date: 20060630
  Receipt Date: 20060518
  Transmission Date: 20061013
  Serious: No
  Sender: FDA-Public Use
  Company Number: PR-BRISTOL-MYERS SQUIBB COMPANY-13381207

PATIENT
  Age: 56 Year
  Sex: Male
  Weight: 95 kg

DRUGS (8)
  1. ORENCIA [Suspect]
     Indication: RHEUMATOID ARTHRITIS
     Route: 042
     Dates: start: 20060501
  2. METHOTREXATE [Concomitant]
  3. CELEBREX [Concomitant]
  4. PREDNISONE [Concomitant]
  5. ULTRAM [Concomitant]
  6. FOLIC ACID [Concomitant]
  7. HEMATON [Concomitant]
  8. VITAMIN B-12 [Concomitant]

REACTIONS (3)
  - ARTHRALGIA [None]
  - INFLAMMATION [None]
  - MYALGIA [None]
